FAERS Safety Report 7765285-2 (Version None)
Quarter: 2011Q3

REPORT INFORMATION
  Report Type: 
  Country: None (occurrence: None)
  Receive Date: 20110916
  Receipt Date: 20110907
  Transmission Date: 20111222
  Serious: Yes (Other)
  Sender: FDA-Public Use
  Company Number: MC201100436

PATIENT

DRUGS (4)
  1. ANGIOMAX [Suspect]
     Dosage: 2 MG/KG, HR, INTRAVENOUS
     Route: 042
  2. ANGIOMAX [Suspect]
     Indication: VENTRICULAR ASSIST DEVICE INSERTION
     Dosage: SEE IMAGE
     Route: 040
  3. FACTOR VIIA, RECOMBINANT (FACTOR VIIA, RECOMBINANT) [Suspect]
     Dosage: 90 UG/KG, UNK
  4. ANGIOMAX [Suspect]
     Dosage: 50 MG, ADDED TO CPB PRIMING SOLUTION

REACTIONS (3)
  - OFF LABEL USE [None]
  - ATRIAL THROMBOSIS [None]
  - POST PROCEDURAL HAEMORRHAGE [None]
